FAERS Safety Report 7789758-1 (Version None)
Quarter: 2011Q3

REPORT INFORMATION
  Report Type: 
  Country: None (occurrence: None)
  Receive Date: 20110930
  Receipt Date: 20101118
  Transmission Date: 20111222
  Serious: No
  Sender: FDA-Public Use
  Company Number: US-ASTRAZENECA-2010SE55083

PATIENT
  Age: 69 Year
  Sex: Female
  Weight: 105.7 kg

DRUGS (3)
  1. SYNTHROID [Concomitant]
  2. HYDROCHLOROTHIAZIDE [Concomitant]
  3. ARIMIDEX [Suspect]
     Indication: BREAST CANCER
     Route: 048
     Dates: start: 20100318

REACTIONS (5)
  - RASH [None]
  - HYPOAESTHESIA [None]
  - PARAESTHESIA [None]
  - TENDONITIS [None]
  - NASOPHARYNGITIS [None]
